FAERS Safety Report 4320407-0 (Version None)
Quarter: 2004Q1

REPORT INFORMATION
  Report Type: 
  Country: None (occurrence: None)
  Receive Date: 20040319
  Receipt Date: 20040319
  Transmission Date: 20041129
  Serious: Yes (Other)
  Sender: FDA-Public Use
  Company Number: None

PATIENT
  Age: 14 Year
  Sex: Female
  Weight: 116.5744 kg

DRUGS (1)
  1. GLUCOPHAGE [Suspect]
     Indication: INSULIN RESISTANCE
     Dosage: ONE BID 500 MG
     Dates: start: 20040107

REACTIONS (4)
  - ABDOMINAL DISTENSION [None]
  - ABDOMINAL PAIN [None]
  - DIARRHOEA [None]
  - DRUG INTOLERANCE [None]
